FAERS Safety Report 18680132 (Version 6)
Quarter: 2021Q2

REPORT INFORMATION
  Report Type: Other
  Country: BR (occurrence: BR)
  Receive Date: 20201230
  Receipt Date: 20210601
  Transmission Date: 20210717
  Serious: Yes (Other)
  Sender: FDA-Public Use
  Company Number: BR-ROCHE-2740512

PATIENT
  Age: 49 Year
  Sex: Female

DRUGS (15)
  1. MONTELUKAST SODIUM. [Concomitant]
     Active Substance: MONTELUKAST SODIUM
     Indication: CHRONIC SPONTANEOUS URTICARIA
     Route: 048
  2. XOLAIR [Suspect]
     Active Substance: OMALIZUMAB
     Route: 058
     Dates: start: 202102
  3. SODIUM CROMOGLYCATE [Concomitant]
     Active Substance: CROMOLYN SODIUM
     Indication: CHRONIC SPONTANEOUS URTICARIA
     Route: 048
  4. SODIUM CROMOGLYCATE [Concomitant]
     Active Substance: CROMOLYN SODIUM
     Indication: HYPERSENSITIVITY
  5. XOLAIR [Suspect]
     Active Substance: OMALIZUMAB
     Indication: URTICARIA
     Route: 058
  6. XOLAIR [Suspect]
     Active Substance: OMALIZUMAB
     Route: 058
     Dates: start: 20210202
  7. XOLAIR [Suspect]
     Active Substance: OMALIZUMAB
     Dosage: 2 DF, QMO (OF 150 MG)
     Route: 058
     Dates: start: 20210210
  8. MONTELUKAST SODIUM. [Concomitant]
     Active Substance: MONTELUKAST SODIUM
     Indication: HYPERSENSITIVITY
  9. XOLAIR [Suspect]
     Active Substance: OMALIZUMAB
     Indication: CHRONIC SPONTANEOUS URTICARIA
     Dosage: 2 DF (300 MG), QMO (STRENGTH: 150 MG AMPOULE))
     Route: 065
     Dates: start: 201708
  10. XOLAIR [Suspect]
     Active Substance: OMALIZUMAB
     Dosage: 2 DF, QMO (OF 150 MG)
     Route: 058
  11. XOLAIR [Suspect]
     Active Substance: OMALIZUMAB
     Dosage: 2 DF, QMO (OF 150 MG)
     Route: 058
     Dates: start: 20210407
  12. XOLAIR [Suspect]
     Active Substance: OMALIZUMAB
     Route: 065
     Dates: start: 202012
  13. XOLAIR [Suspect]
     Active Substance: OMALIZUMAB
     Route: 065
     Dates: start: 20210407
  14. XOLAIR [Suspect]
     Active Substance: OMALIZUMAB
     Dosage: 2 DF, QMO (OF 150 MG)
     Route: 058
     Dates: start: 20210507
  15. XOLAIR [Suspect]
     Active Substance: OMALIZUMAB
     Dosage: 2 DF, QMO (OF 150 MG)
     Route: 058
     Dates: start: 20210113

REACTIONS (30)
  - Burning sensation [Not Recovered/Not Resolved]
  - Eye oedema [Unknown]
  - Body temperature increased [Unknown]
  - Disease recurrence [Unknown]
  - Face oedema [Recovered/Resolved]
  - Eye disorder [Unknown]
  - Skin irritation [Unknown]
  - Angioedema [Unknown]
  - Oedema [Not Recovered/Not Resolved]
  - Abnormal sensation in eye [Unknown]
  - Periorbital swelling [Unknown]
  - Erythema [Recovered/Resolved]
  - Face oedema [Recovered/Resolved]
  - Burning sensation [Recovered/Resolved]
  - Product dose omission issue [Unknown]
  - Pruritus [Unknown]
  - Dark circles under eyes [Unknown]
  - Pain [Unknown]
  - Skin burning sensation [Recovered/Resolved]
  - Dyspepsia [Recovered/Resolved]
  - Malaise [Unknown]
  - Periorbital swelling [Unknown]
  - Hypersensitivity [Unknown]
  - Viral infection [Unknown]
  - Pyrexia [Unknown]
  - General physical health deterioration [Unknown]
  - Swelling of eyelid [Unknown]
  - Swelling face [Recovering/Resolving]
  - Urticaria [Unknown]
  - Erythema [Recovered/Resolved]

NARRATIVE: CASE EVENT DATE: 20190510
